FAERS Safety Report 15074412 (Version 1)
Quarter: 2018Q3

REPORT INFORMATION
  Report Type: Spontaneous
  Country: NL (occurrence: NL)
  Receive Date: 20180627
  Receipt Date: 20180627
  Transmission Date: 20181010
  Serious: Yes (Other)
  Sender: FDA-Public Use
  Company Number: NL-AUROBINDO-AUR-APL-2018-032353

PATIENT
  Age: 31 Year
  Sex: Female
  Weight: 46 kg

DRUGS (3)
  1. METRONIDAZOLE AUROBINDO 500MG FILM?COATED TABLET [Suspect]
     Active Substance: METRONIDAZOLE
     Indication: ABDOMINAL DISCOMFORT
     Dosage: 500 MILLIGRAM, 2X DAAGS 1 STUK (1000 MG PER DAG)
     Route: 065
     Dates: start: 20180210, end: 20180215
  2. OFLOXACINE SANDOZ [Suspect]
     Active Substance: OFLOXACIN
     Indication: BODY TEMPERATURE INCREASED
     Dosage: 400 MILLIGRAM, 2X PER DAG 1 STUK (800 MG PER DAG)
     Route: 065
     Dates: start: 20180210, end: 20180215
  3. OFLOXACINE SANDOZ [Suspect]
     Active Substance: OFLOXACIN
     Indication: ABDOMINAL DISCOMFORT

REACTIONS (17)
  - Nightmare [Recovering/Resolving]
  - Feeling abnormal [Recovering/Resolving]
  - Ear discomfort [Recovered/Resolved]
  - Pain [Recovering/Resolving]
  - Anxiety [Recovered/Resolved]
  - Tinnitus [Recovered/Resolved]
  - Dysgeusia [Recovered/Resolved]
  - Palpitations [Recovered/Resolved]
  - Neuropathy peripheral [Not Recovered/Not Resolved]
  - Mucosal dryness [Not Recovered/Not Resolved]
  - Headache [Recovered/Resolved]
  - Hyperhidrosis [Recovering/Resolving]
  - Paraesthesia [Recovering/Resolving]
  - Hallucination [Recovering/Resolving]
  - Parosmia [Recovered/Resolved]
  - Tongue discolouration [Recovered/Resolved with Sequelae]
  - Hot flush [Recovering/Resolving]

NARRATIVE: CASE EVENT DATE: 20180210
